FAERS Safety Report 8788977 (Version 2)
Quarter: 2013Q2

REPORT INFORMATION
  Report Type: Report from Study
  Country: JP (occurrence: JP)
  Receive Date: 20120915
  Receipt Date: 20130415
  Transmission Date: 20140414
  Serious: Yes (Hospitalization)
  Sender: FDA-Public Use
  Company Number: JP-009507513-1209JPN003239

PATIENT
  Age: 64 Year
  Sex: Female
  Weight: 51 kg

DRUGS (18)
  1. PEGINTRON [Suspect]
     Indication: CHRONIC HEPATITIS C
     Dosage: 1.5 MICROGRAM PER KILOGRAM, QW
     Route: 058
     Dates: start: 20120510, end: 20120712
  2. PEGINTRON [Suspect]
     Dosage: 1.5 MICROGRAM PER KILOGRAM, UNK
     Route: 058
     Dates: start: 20120802, end: 20121101
  3. REBETOL [Suspect]
     Indication: CHRONIC HEPATITIS C
     Dosage: 600 MG, QD
     Route: 048
     Dates: start: 20120510, end: 20120606
  4. REBETOL [Suspect]
     Dosage: 400 MG, QD
     Route: 048
     Dates: start: 20120607, end: 20120719
  5. REBETOL [Suspect]
     Dosage: 400 MG,QD
     Route: 048
     Dates: end: 20121108
  6. TELAVIC [Suspect]
     Indication: CHRONIC HEPATITIS C
     Dosage: 1500 MG, QD
     Route: 048
     Dates: start: 20120510, end: 20120712
  7. URSO [Concomitant]
     Indication: CHRONIC HEPATITIS C
     Dosage: 600 MG, QD,FORMULATION:POR
     Route: 048
     Dates: end: 20120517
  8. ALLEGRA [Concomitant]
     Indication: RASH
     Dosage: 120 MG, QD, FORMULATION:POR
     Route: 048
     Dates: start: 20120517
  9. ZYLORIC [Concomitant]
     Indication: HYPERURICAEMIA
     Dosage: 200 MG, QD, FORMULATION:POR
     Route: 048
     Dates: start: 20120531, end: 20120704
  10. [COMPOSITION UNSPECIFIED] [Concomitant]
     Indication: HYPERURICAEMIA
     Dosage: 20 MG, QD; FORMULATION-POR
     Route: 048
     Dates: start: 20120705, end: 20120719
  11. PREDONINE [Concomitant]
     Indication: DRUG ERUPTION
     Dosage: 35 MG, QD, FORMULATION:POR
     Route: 048
     Dates: start: 20120802, end: 20120805
  12. PREDONINE [Concomitant]
     Dosage: 30 MG,QD, FORMULATION:POR
     Route: 048
     Dates: start: 20120806, end: 20120812
  13. PREDONINE [Concomitant]
     Dosage: 25 MG,QD,FORMULATION:POR
     Route: 048
     Dates: start: 20120813, end: 20120818
  14. PREDONINE [Concomitant]
     Dosage: 20 MG,QD, FORMULATION:POR
     Route: 048
     Dates: start: 20120819, end: 20120826
  15. PREDONINE [Concomitant]
     Dosage: 15 MG,QD, FORMULATION:POR
     Route: 048
     Dates: start: 20120827, end: 20120902
  16. PREDONINE [Concomitant]
     Dosage: 10 MG,QD, FORMULATION:POR
     Route: 048
     Dates: start: 20120903, end: 20120909
  17. PREDONINE [Concomitant]
     Dosage: 5 MG,QD, FORMULATION:POR
     Route: 048
     Dates: start: 20120910, end: 20120916
  18. PREDONINE [Concomitant]
     Dosage: UNK

REACTIONS (1)
  - Rash [Recovered/Resolved]
